FAERS Safety Report 10050239 (Version 1)
Quarter: 2014Q2

REPORT INFORMATION
  Report Type: Spontaneous
  Country: GB (occurrence: GB)
  Receive Date: 20140401
  Receipt Date: 20140401
  Transmission Date: 20141212
  Serious: Yes (Other)
  Sender: FDA-Public Use
  Company Number: GB-B.I. PHARMACEUTICALS,INC./RIDGEFIELD-2014-BI-13053UK

PATIENT
  Age: 32 Year
  Sex: Female

DRUGS (7)
  1. SPIRIVA [Suspect]
     Indication: ASTHMA
     Route: 065
  2. ALENDRONIC ACID [Suspect]
     Indication: PRODUCT USED FOR UNKNOWN INDICATION
     Route: 065
  3. FEXOFENADINE [Suspect]
     Indication: ASTHMA
     Route: 048
  4. MONTELUKAST SODIUM [Suspect]
     Indication: PRODUCT USED FOR UNKNOWN INDICATION
     Dosage: 10 MG
     Route: 065
  5. SYMBICORT [Suspect]
     Indication: ASTHMA
     Route: 065
  6. THEOPHYLLINE [Suspect]
     Indication: ASTHMA
     Route: 048
  7. XOLAIR [Suspect]
     Indication: ASTHMA
     Route: 058

REACTIONS (2)
  - Haemorrhage [Recovered/Resolved]
  - Skin infection [Not Recovered/Not Resolved]
